FAERS Safety Report 7024104-2 (Version None)
Quarter: 2010Q4

REPORT INFORMATION
  Report Type: 
  Country: None (occurrence: None)
  Receive Date: 20101001
  Receipt Date: 20100923
  Transmission Date: 20110411
  Serious: Yes (Other)
  Sender: FDA-Public Use
  Company Number: US-SANOFI-AVENTIS-2010SA058744

PATIENT
  Age: 54 Year
  Sex: Male

DRUGS (4)
  1. ZOLPIDEM TARTRATE [Suspect]
     Indication: SLEEP DISORDER
     Route: 048
     Dates: start: 20100826, end: 20100826
  2. OXYCONTIN [Concomitant]
     Dates: start: 20060101
  3. LIPITOR [Concomitant]
  4. ESOMEPRAZOLE [Concomitant]

REACTIONS (4)
  - AMNESIA [None]
  - CONTUSION [None]
  - EXCORIATION [None]
  - ROAD TRAFFIC ACCIDENT [None]
